FAERS Safety Report 7068273-7 (Version None)
Quarter: 2010Q4

REPORT INFORMATION
  Report Type: 
  Country: None (occurrence: None)
  Receive Date: 20101028
  Receipt Date: 20101019
  Transmission Date: 20110411
  Serious: Yes (Hospitalization)
  Sender: FDA-Public Use
  Company Number: FR-JNJFOC-20101006272

PATIENT
  Sex: Female
  Weight: 56 kg

DRUGS (3)
  1. INTELENCE [Suspect]
     Indication: HIV INFECTION
  2. KALETRA [Concomitant]
     Indication: HIV INFECTION
  3. ISENTRESS [Concomitant]
     Indication: HIV INFECTION

REACTIONS (2)
  - EYELID OEDEMA [None]
  - OEDEMA PERIPHERAL [None]
